FAERS Safety Report 5937641-6 (Version None)
Quarter: 2008Q4

REPORT INFORMATION
  Report Type: 
  Country: None (occurrence: None)
  Receive Date: 20081031
  Receipt Date: 20081021
  Transmission Date: 20090506
  Serious: Yes (Disabling, Other)
  Sender: FDA-Public Use
  Company Number: GB-BRISTOL-MYERS SQUIBB COMPANY-14263370

PATIENT
  Age: 80 Year
  Sex: Female

DRUGS (9)
  1. ABILIFY [Suspect]
     Dosage: STARTED WITH 5MG/D INCREASED TO 10MG/D FROM 20MAY08 AND DECREASED TO 5MG/D FROM 27AUG08
     Route: 048
     Dates: start: 20080507, end: 20080903
  2. AMLODIPINE [Concomitant]
     Route: 048
     Dates: start: 20080401
  3. BISOPROLOL FUMARATE [Concomitant]
     Route: 048
  4. ACETYLSALICYLIC ACID SRT [Concomitant]
  5. BENDROFLUAZIDE [Concomitant]
  6. NICORANDIL [Concomitant]
     Route: 048
     Dates: start: 20060801
  7. FUROSEMIDE [Concomitant]
     Dates: start: 20081010
  8. RAMIPRIL [Concomitant]
     Dates: start: 20081010
  9. AMLODIPINE [Concomitant]
     Dates: start: 20080401

REACTIONS (3)
  - BLOOD PRESSURE INCREASED [None]
  - GAIT DISTURBANCE [None]
  - HYPOAESTHESIA [None]
